FAERS Safety Report 9712034 (Version 2)
Quarter: 2013Q4

REPORT INFORMATION
  Report Type: Spontaneous
  Country: US (occurrence: US)
  Receive Date: 20131126
  Receipt Date: 20131126
  Transmission Date: 20140711
  Serious: No
  Sender: FDA-Public Use
  Company Number: US-BRISTOL-MYERS SQUIBB COMPANY-19136704

PATIENT
  Age: 50 Year
  Sex: Female
  Weight: 90.47 kg

DRUGS (9)
  1. BYDUREON [Suspect]
     Indication: TYPE 2 DIABETES MELLITUS
     Route: 058
     Dates: start: 20130422
  2. METFORMIN [Concomitant]
  3. SOLDEM 3A [Concomitant]
  4. SIMVASTATIN [Concomitant]
  5. RAMIPRIL [Concomitant]
  6. ASPIRIN [Concomitant]
  7. MULTIVITAMIN [Concomitant]
  8. METROGEL [Concomitant]
  9. MONTELUKAST [Concomitant]

REACTIONS (3)
  - Menopausal symptoms [Unknown]
  - Injection site extravasation [Recovered/Resolved]
  - Drug ineffective [Unknown]
